FAERS Safety Report 9752926 (Version 1)
Quarter: 2013Q4

REPORT INFORMATION
  Report Type: Spontaneous
  Country: US (occurrence: None)
  Receive Date: 20131211
  Receipt Date: 20131211
  Transmission Date: 20140711
  Serious: Yes (Other)
  Sender: FDA-Public Use
  Company Number: 7254645

PATIENT
  Sex: 0

DRUGS (1)
  1. LEVOTHYROXINE (LEVOTHYROXINE) [Suspect]
     Indication: HYPOTHYROIDISM

REACTIONS (3)
  - Hyperthyroidism [None]
  - Product substitution issue [None]
  - Therapeutic response unexpected with drug substitution [None]
